FAERS Safety Report 23310854 (Version 1)
Quarter: 2023Q4

REPORT INFORMATION
  Report Type: Spontaneous
  Country: DE (occurrence: DE)
  Receive Date: 20231218
  Receipt Date: 20231218
  Transmission Date: 20240110
  Serious: No
  Sender: FDA-Public Use
  Company Number: DE-ALKEM LABORATORIES LIMITED-DE-ALKEM-2022-13580

PATIENT
  Age: 28 Year
  Sex: Female

DRUGS (2)
  1. MYCOPHENOLATE MOFETIL [Suspect]
     Active Substance: MYCOPHENOLATE MOFETIL
     Indication: Lupus nephritis
     Dosage: 500 MILLIGRAM, CELLCEPT
     Route: 065
     Dates: start: 202203
  2. PREDNISONE [Concomitant]
     Active Substance: PREDNISONE
     Indication: Lupus nephritis
     Dosage: 10 MILLIGRAM
     Route: 065
     Dates: start: 202203

REACTIONS (3)
  - Arthralgia [Unknown]
  - Serositis [Unknown]
  - Off label use [Unknown]

NARRATIVE: CASE EVENT DATE: 20220301
